FAERS Safety Report 7898585-6 (Version None)
Quarter: 2011Q4

REPORT INFORMATION
  Report Type: 
  Country: None (occurrence: None)
  Receive Date: 20111107
  Receipt Date: 20111104
  Transmission Date: 20120403
  Serious: Yes (Hospitalization, Other)
  Sender: FDA-Public Use
  Company Number: US-ABBOTT-11P-163-0869363-00

PATIENT
  Sex: Female
  Weight: 57.658 kg

DRUGS (6)
  1. HUMIRA [Suspect]
     Indication: RHEUMATOID ARTHRITIS
     Route: 058
     Dates: start: 20030101
  2. HYDROXYZINE [Concomitant]
     Indication: SEASONAL ALLERGY
  3. NEXIUM [Concomitant]
     Indication: PRODUCT USED FOR UNKNOWN INDICATION
  4. PREMARIN [Concomitant]
     Indication: PRODUCT USED FOR UNKNOWN INDICATION
  5. HYDROXYZINE [Concomitant]
     Indication: SINUS DISORDER
  6. SYNTHROID [Concomitant]
     Indication: THYROID DISORDER

REACTIONS (8)
  - FALL [None]
  - HEAD INJURY [None]
  - DEHYDRATION [None]
  - CLOSTRIDIAL INFECTION [None]
  - VOMITING [None]
  - LOSS OF CONSCIOUSNESS [None]
  - DECUBITUS ULCER [None]
  - DIARRHOEA [None]
